FAERS Safety Report 16663950 (Version 1)
Quarter: 2019Q3

REPORT INFORMATION
  Report Type: Spontaneous
  Country: CH (occurrence: CH)
  Receive Date: 20190802
  Receipt Date: 20190802
  Transmission Date: 20191004
  Serious: Yes (Life-Threatening, Hospitalization, Other)
  Sender: FDA-Public Use
  Company Number: CH-GLAXOSMITHKLINE-CH2019138148

PATIENT
  Age: 24 Year
  Sex: Male
  Weight: 75 kg

DRUGS (8)
  1. ADRENALIN [Concomitant]
     Active Substance: EPINEPHRINE
     Dosage: 300MCG ADRENALIN I.M. UND 125 MG SOLUMEDROL I.V. NACH CPR
     Route: 030
     Dates: start: 20190715, end: 20190715
  2. FENIALLERG [Suspect]
     Active Substance: DIMETHINDENE MALEATE
     Indication: PRODUCT USED FOR UNKNOWN INDICATION
     Dosage: IN TOTAL
     Route: 048
     Dates: start: 20190715, end: 20190715
  3. TAVEGYL [Suspect]
     Active Substance: CLEMASTINE FUMARATE
     Indication: PRODUCT USED FOR UNKNOWN INDICATION
     Dosage: IN TOTAL
     Route: 042
     Dates: start: 20190715, end: 20190715
  4. SOLU-MEDROL [Suspect]
     Active Substance: METHYLPREDNISOLONE SODIUM SUCCINATE
     Dosage: AFTER CARDIOPULMONARY RESUSCITATION AGAIN
     Route: 042
     Dates: start: 20190715, end: 20190715
  5. ADRENALIN [Concomitant]
     Active Substance: EPINEPHRINE
     Indication: PRODUCT USED FOR UNKNOWN INDICATION
     Dosage: 300MCG ADRENALIN I.M., 125 MG SOLUMEDROL IV UND CLEMASTIN (TAVEGYL)2 MG IV (SPITAL)
     Route: 030
     Dates: start: 20190715, end: 20190715
  6. SOLU-MEDROL [Suspect]
     Active Substance: METHYLPREDNISOLONE SODIUM SUCCINATE
     Indication: PRODUCT USED FOR UNKNOWN INDICATION
     Dosage: ON THE EMERGENCY WARD THERAPY WITH TAVEGYL UND PREDNISOLON I.V. SUCH AS ADRENALIN I.M.. ; IN TOTAL
     Route: 042
     Dates: start: 20190715, end: 20190715
  7. PREDNISONE. [Suspect]
     Active Substance: PREDNISONE
     Indication: PRODUCT USED FOR UNKNOWN INDICATION
     Dosage: IN TOTAL
     Route: 048
     Dates: start: 20190715, end: 20190715
  8. XYZAL [Concomitant]
     Active Substance: LEVOCETIRIZINE DIHYDROCHLORIDE
     Indication: PRODUCT USED FOR UNKNOWN INDICATION
     Dosage: IN TOTAL
     Route: 048
     Dates: start: 20190715, end: 20190715

REACTIONS (4)
  - Bradycardia [Recovered/Resolved]
  - Electrocardiogram QT prolonged [Recovered/Resolved]
  - Therapeutic product effect increased [Recovered/Resolved]
  - Cardiac arrest [Recovered/Resolved]

NARRATIVE: CASE EVENT DATE: 20190715
